FAERS Safety Report 7741630-9 (Version None)
Quarter: 2011Q3

REPORT INFORMATION
  Report Type: 
  Country: None (occurrence: None)
  Receive Date: 20110911
  Receipt Date: 20110831
  Transmission Date: 20111222
  Serious: Yes (Life-Threatening)
  Sender: FDA-Public Use
  Company Number: NL-CELGENEUS-114-21880-11081807

PATIENT
  Sex: Female
  Weight: 81 kg

DRUGS (3)
  1. REVLIMID [Suspect]
     Dosage: 15 MILLIGRAM
     Route: 048
     Dates: start: 20110728, end: 20110817
  2. CYTARABINE [Suspect]
     Dosage: 390 MILLIGRAM
     Route: 041
     Dates: start: 20110728, end: 20110803
  3. DAUNORUBICIN HCL [Suspect]
     Dosage: 88 MILLIGRAM
     Route: 041
     Dates: start: 20110728, end: 20110730

REACTIONS (1)
  - SEPSIS [None]
